FAERS Safety Report 4617958-8 (Version None)
Quarter: 2005Q1

REPORT INFORMATION
  Report Type: 
  Country: None (occurrence: None)
  Receive Date: 20050322
  Receipt Date: 20050310
  Transmission Date: 20050727
  Serious: Yes (Other)
  Sender: FDA-Public Use
  Company Number: 200510362BCC

PATIENT
  Age: 76 Year
  Sex: Female
  Weight: 77.1115 kg

DRUGS (8)
  1. ASPIRIN [Suspect]
     Indication: ARTHRITIS
     Dosage: 325 MG, QD, ORAL; 650 MG, PRN, ORAL
     Route: 048
  2. ASPIRIN [Suspect]
     Indication: CARDIAC DISORDER
     Dosage: 325 MG, QD, ORAL; 650 MG, PRN, ORAL
     Route: 048
  3. ASPIRIN [Suspect]
     Indication: PAIN
     Dosage: 325 MG, QD, ORAL; 650 MG, PRN, ORAL
     Route: 048
  4. ASPIRIN [Suspect]
     Indication: PROPHYLAXIS
     Dosage: 325 MG, QD, ORAL; 650 MG, PRN, ORAL
     Route: 048
  5. LOTENSIN [Concomitant]
  6. LIPITOR [Concomitant]
  7. HYDROCHLOROTHIAZIDE [Concomitant]
  8. MULTI-VITAMIN [Concomitant]

REACTIONS (5)
  - DYSPNOEA [None]
  - HEART RATE INCREASED [None]
  - MITRAL VALVE STENOSIS [None]
  - PULMONARY OEDEMA [None]
  - UPPER RESPIRATORY TRACT INFECTION [None]
